FAERS Safety Report 20016560 (Version 1)
Quarter: 2021Q4

REPORT INFORMATION
  Report Type: Spontaneous
  Country: US (occurrence: None)
  Receive Date: 20211104
  Receipt Date: 20211104
  Transmission Date: 20220303
  Serious: Yes (Hospitalization)
  Sender: FDA-Public Use
  Company Number: None

PATIENT
  Age: 38 Year
  Sex: Male
  Weight: 75.8 kg

DRUGS (8)
  1. CYCLOPHOSPHAMIDE [Suspect]
     Active Substance: CYCLOPHOSPHAMIDE
     Dates: end: 20210906
  2. CYTARABINE [Suspect]
     Active Substance: CYTARABINE
     Dates: end: 20210927
  3. SPRYCEL [Suspect]
     Active Substance: DASATINIB
     Dates: end: 20211003
  4. DOXORUBICIN HYDROCHLORIDE [Suspect]
     Active Substance: DOXORUBICIN HYDROCHLORIDE
     Dates: end: 20210907
  5. MESNA [Suspect]
     Active Substance: MESNA
     Dates: end: 20210906
  6. METHOTREXATE [Suspect]
     Active Substance: METHOTREXATE
     Dates: start: 20210925
  7. VINCRISTINE SULFATE [Suspect]
     Active Substance: VINCRISTINE SULFATE
     Dates: end: 20210913
  8. DEXAMETHASONE [Suspect]
     Active Substance: DEXAMETHASONE
     Dates: end: 20210926

REACTIONS (5)
  - Petechiae [None]
  - Platelet count decreased [None]
  - Urticaria [None]
  - Sinus tachycardia [None]
  - Dyspnoea [None]

NARRATIVE: CASE EVENT DATE: 20211003
